FAERS Safety Report 8499177-0 (Version None)
Quarter: 2012Q2

REPORT INFORMATION
  Report Type: 
  Country: None (occurrence: None)
  Receive Date: 20120405
  Receipt Date: 20100727
  Transmission Date: 20120825
  Serious: Yes (Other)
  Sender: FDA-Public Use
  Company Number: PHHY2010US42698

PATIENT
  Age: 76 Year
  Sex: Female
  Weight: 188 kg

DRUGS (1)
  1. RECLAST [Suspect]
     Indication: OSTEOPOROSIS
     Dosage: INTRAVENOUS
     Route: 042
     Dates: start: 20100725

REACTIONS (6)
  - DRUG HYPERSENSITIVITY [None]
  - SWELLING [None]
  - OEDEMA PERIPHERAL [None]
  - BLOOD CALCIUM DECREASED [None]
  - DIZZINESS [None]
  - ASTHENIA [None]
